FAERS Safety Report 17443430 (Version 3)
Quarter: 2020Q2

REPORT INFORMATION
  Report Type: Spontaneous
  Country: US (occurrence: US)
  Receive Date: 20200221
  Receipt Date: 20200427
  Transmission Date: 20200713
  Serious: No
  Sender: FDA-Public Use
  Company Number: US-DRREDDYS-USA/USA/20/0119753

PATIENT
  Age: 35 Year
  Sex: Male
  Weight: 81.65 kg

DRUGS (1)
  1. NICOTINE. [Suspect]
     Active Substance: NICOTINE
     Indication: SMOKING CESSATION THERAPY
     Route: 062

REACTIONS (4)
  - Guttate psoriasis [Recovered/Resolved]
  - Parakeratosis [Recovered/Resolved]
  - Perivascular dermatitis [Recovered/Resolved]
  - Dermatitis psoriasiform [Recovered/Resolved]
